FAERS Safety Report 19853626 (Version 1)
Quarter: 2021Q3

REPORT INFORMATION
  Report Type: Other
  Country: US (occurrence: US)
  Receive Date: 20210919
  Receipt Date: 20210919
  Transmission Date: 20211014
  Serious: Yes (Hospitalization)
  Sender: FDA-Public Use
  Company Number: US-ROCHE-2446643

PATIENT
  Sex: Male

DRUGS (11)
  1. VALCYTE [Suspect]
     Active Substance: VALGANCICLOVIR HYDROCHLORIDE
     Indication: LIVER TRANSPLANT
     Route: 048
     Dates: start: 20190930
  2. INSULIN [Concomitant]
     Active Substance: INSULIN NOS
     Dosage: EVERY MORNING
     Route: 058
  3. ACETAMINOPHEN. [Concomitant]
     Active Substance: ACETAMINOPHEN
     Indication: PAIN
     Route: 048
  4. LOPRESSOR [Concomitant]
     Active Substance: METOPROLOL TARTRATE
     Route: 048
  5. CELLCEPT [Suspect]
     Active Substance: MYCOPHENOLATE MOFETIL\MYCOPHENOLATE MOFETIL HYDROCHLORIDE
     Indication: PRODUCT USED FOR UNKNOWN INDICATION
     Dosage: TAKE 4 TABS BID, 8 AM AND 8 PM, ONGOING: NO
     Route: 048
     Dates: start: 20191001, end: 20200930
  6. SENOKOT?S [Concomitant]
     Active Substance: DOCUSATE SODIUM\SENNOSIDES
     Dosage: 8.6 ? 50 MG
     Route: 048
  7. OXYCODONE [Concomitant]
     Active Substance: OXYCODONE
     Indication: PAIN
     Route: 048
  8. TACROLIMUS. [Concomitant]
     Active Substance: TACROLIMUS
     Dosage: EVERY 12 HOURS
     Route: 048
  9. ASPIRIN. [Concomitant]
     Active Substance: ASPIRIN
     Route: 048
  10. DIFLUCAN [Concomitant]
     Active Substance: FLUCONAZOLE
     Indication: PROPHYLAXIS
     Route: 048
  11. PROTONIX [Concomitant]
     Active Substance: PANTOPRAZOLE SODIUM
     Route: 048

REACTIONS (2)
  - Myocardial infarction [Unknown]
  - Off label use [Unknown]
